FAERS Safety Report 26133601 (Version 1)
Quarter: 2025Q4

REPORT INFORMATION
  Report Type: Spontaneous
  Country: US (occurrence: US)
  Receive Date: 20251209
  Receipt Date: 20251209
  Transmission Date: 20260118
  Serious: No
  Sender: Onesource Specialty Pharma
  Company Number: US-STRIDES ARCOLAB LIMITED-2025-ST-001172

PATIENT
  Age: 6 Year
  Sex: Female

DRUGS (1)
  1. MIDAZOLAM [Suspect]
     Active Substance: MIDAZOLAM
     Indication: Anxiety
     Dosage: 6 MILLIGRAM
     Route: 065

REACTIONS (1)
  - Drug ineffective for unapproved indication [Unknown]
